FAERS Safety Report 19033616 (Version 1)
Quarter: 2021Q1

REPORT INFORMATION
  Report Type: Spontaneous
  Country: US (occurrence: US)
  Receive Date: 20210319
  Receipt Date: 20210319
  Transmission Date: 20210420
  Serious: Yes (Other)
  Sender: FDA-Public Use
  Company Number: US-GLAXOSMITHKLINE-US2021GSK065579

PATIENT
  Sex: Female

DRUGS (12)
  1. RANITIDINE. [Suspect]
     Active Substance: RANITIDINE
     Dosage: 150  MG BOTH
     Route: 065
     Dates: start: 199701, end: 200901
  2. ZANTAC [Suspect]
     Active Substance: RANITIDINE HYDROCHLORIDE
     Dosage: 150 MG BOTH
     Route: 065
     Dates: start: 199701, end: 200901
  3. ZANTAC [Suspect]
     Active Substance: RANITIDINE HYDROCHLORIDE
     Dosage: 300 MG, QD
     Route: 065
     Dates: start: 199701, end: 200901
  4. RANITIDINE. [Suspect]
     Active Substance: RANITIDINE
     Indication: GASTROOESOPHAGEAL REFLUX DISEASE
     Dosage: 75 MG BOTH
     Route: 065
     Dates: start: 199701, end: 200901
  5. RANITIDINE. [Suspect]
     Active Substance: RANITIDINE
     Dosage: 300 UNK, QD
     Route: 065
     Dates: start: 199701, end: 200901
  6. ZANTAC [Suspect]
     Active Substance: RANITIDINE HYDROCHLORIDE
     Indication: GASTROOESOPHAGEAL REFLUX DISEASE
     Dosage: 75 MG BOTH
     Route: 065
     Dates: start: 199701, end: 200901
  7. ZANTAC [Suspect]
     Active Substance: RANITIDINE HYDROCHLORIDE
     Dosage: 300 MG, QD
     Route: 065
     Dates: start: 199701, end: 200901
  8. RANITIDINE. [Suspect]
     Active Substance: RANITIDINE
     Dosage: 300 UNK, QD
     Route: 065
     Dates: start: 199701, end: 200901
  9. ZANTAC [Suspect]
     Active Substance: RANITIDINE HYDROCHLORIDE
     Indication: GASTROOESOPHAGEAL REFLUX DISEASE
     Dosage: 150 MG BOTH
     Route: 065
     Dates: start: 199701, end: 200901
  10. RANITIDINE. [Suspect]
     Active Substance: RANITIDINE
     Indication: GASTROOESOPHAGEAL REFLUX DISEASE
     Dosage: 75 MG BOTH
     Route: 065
     Dates: start: 199701, end: 200901
  11. RANITIDINE. [Suspect]
     Active Substance: RANITIDINE
     Dosage: 150  MG BOTH
     Route: 065
     Dates: start: 199701, end: 200901
  12. ZANTAC [Suspect]
     Active Substance: RANITIDINE HYDROCHLORIDE
     Dosage: UNK

REACTIONS (1)
  - Breast cancer [Unknown]
